FAERS Safety Report 7051659-4 (Version None)
Quarter: 2010Q4

REPORT INFORMATION
  Report Type: 
  Country: None (occurrence: None)
  Receive Date: 20101012
  Receipt Date: 20100927
  Transmission Date: 20110411
  Serious: Yes (Hospitalization)
  Sender: FDA-Public Use
  Company Number: UTC-001486

PATIENT
  Age: 65 Year
  Sex: Female
  Weight: 100.4 kg

DRUGS (13)
  1. REMODULIN [Suspect]
     Indication: PULMONARY ARTERIAL HYPERTENSION
     Dosage: 129.6 UG/KG (0.09 UG/KG,1 IN 1 MIN),SUBCUTANEOUS
     Route: 058
     Dates: start: 20091017
  2. COUMADIN [Concomitant]
  3. FUROSEMIDE [Concomitant]
  4. LYRICA [Concomitant]
  5. POTASSIUM CHLORIDE [Concomitant]
  6. LANTUS [Concomitant]
  7. CITALOPRAM HYDROBROMIDE [Concomitant]
  8. SIMVASTATIN [Concomitant]
  9. METOLAZONE [Concomitant]
  10. HYDROCODONE BITARTRATE [Concomitant]
  11. METOPROLOL SUCCINATE [Concomitant]
  12. FENTANYL-100 [Concomitant]
  13. FERROUS SULFATE TAB [Concomitant]

REACTIONS (3)
  - DYSPNOEA [None]
  - INFUSION SITE INFECTION [None]
  - RENAL DISORDER [None]
